FAERS Safety Report 10051096 (Version 1)
Quarter: 2014Q2

REPORT INFORMATION
  Report Type: Spontaneous
  Country: US (occurrence: US)
  Receive Date: 20140401
  Receipt Date: 20140401
  Transmission Date: 20141212
  Serious: No
  Sender: FDA-Public Use
  Company Number: US-ASTRAZENECA-2013SE48703

PATIENT
  Age: 64 Year
  Sex: Male

DRUGS (3)
  1. NEXIUM [Suspect]
     Route: 048
  2. DOMPERIDONE [Concomitant]
  3. DEXILANT [Concomitant]

REACTIONS (12)
  - Aspiration [Unknown]
  - Bronchopulmonary disease [Unknown]
  - Odynophagia [Unknown]
  - Dysphagia [Unknown]
  - Condition aggravated [Unknown]
  - Oesophageal stenosis [Unknown]
  - Oesophageal motility disorder [Unknown]
  - Impaired gastric emptying [Unknown]
  - Gastrointestinal motility disorder [Unknown]
  - Oesophagitis ulcerative [Unknown]
  - Intentional product misuse [Unknown]
  - Intentional product misuse [Unknown]
